FAERS Safety Report 8905669 (Version 1)
Quarter: 2012Q4

REPORT INFORMATION
  Report Type: 
  Country: ES (occurrence: ES)
  Receive Date: 20121113
  Receipt Date: 20121113
  Transmission Date: 20130627
  Serious: Yes (Hospitalization)
  Sender: FDA-Public Use
  Company Number: ES-ABBOTT-12P-144-1003448-00

PATIENT
  Age: 60 Year
  Sex: Female

DRUGS (8)
  1. HUMIRA [Suspect]
     Indication: PSORIASIS
     Route: 058
     Dates: start: 20111114, end: 20120709
  2. LORACEPAM [Concomitant]
     Indication: PRODUCT USED FOR UNKNOWN INDICATION
  3. VENLAFAXINA HIDROCLORURO (ARAFAXINA RETARD) [Concomitant]
     Route: 048
  4. ALPRAZOLAM [Concomitant]
     Indication: PRODUCT USED FOR UNKNOWN INDICATION
  5. HIDROXICINA DIHIDROCLORURO (ATARAX) [Concomitant]
     Indication: PRODUCT USED FOR UNKNOWN INDICATION
  6. LOPERAMIDA HIDROCLORURO (FORTASEC) [Concomitant]
     Indication: DIARRHOEA
  7. IBUPROFEN [Concomitant]
     Indication: PRODUCT USED FOR UNKNOWN INDICATION
  8. ALMAGATO (ALMAX) [Concomitant]
     Indication: PRODUCT USED FOR UNKNOWN INDICATION

REACTIONS (3)
  - Nephrotic syndrome [Recovering/Resolving]
  - Lupus-like syndrome [Recovering/Resolving]
  - Renal impairment [Unknown]
